FAERS Safety Report 9975949 (Version 6)
Quarter: 2014Q3

REPORT INFORMATION
  Report Type: Report from Study
  Country: CA (occurrence: CA)
  Receive Date: 20140306
  Receipt Date: 20140923
  Transmission Date: 20150326
  Serious: Yes (Hospitalization)
  Sender: FDA-Public Use
  Company Number: CA-ABBVIE-14P-028-1206500-00

PATIENT
  Age: 26 Year
  Sex: Female
  Weight: 46.76 kg

DRUGS (2)
  1. ISENTRESS [Concomitant]
     Active Substance: RALTEGRAVIR POTASSIUM
     Indication: HIV INFECTION
     Route: 048
     Dates: start: 20140205
  2. KALETRA [Suspect]
     Active Substance: LOPINAVIR\RITONAVIR
     Indication: ANTIRETROVIRAL THERAPY
     Dosage: FORM STRENGTH: 200/50 MG, UNIT DOSE: 2 TABLETS TOTAL, DAILY DOSE: 800/200 MG
     Route: 048
     Dates: start: 20140205, end: 20140227

REACTIONS (7)
  - Head discomfort [Recovered/Resolved]
  - Malaise [Unknown]
  - Headache [Recovered/Resolved]
  - Headache [Unknown]
  - Visual impairment [Unknown]
  - Hypertension [Unknown]
  - Peripheral swelling [Recovering/Resolving]

NARRATIVE: CASE EVENT DATE: 20140219
